FAERS Safety Report 9037861 (Version 1)
Quarter: 2013Q1

REPORT INFORMATION
  Report Type: Spontaneous
  Country: FI (occurrence: FI)
  Receive Date: 20130129
  Receipt Date: 20130129
  Transmission Date: 20140127
  Serious: Yes (Other)
  Sender: FDA-Public Use
  Company Number: FI-ELI_LILLY_AND_COMPANY-FI201301006149

PATIENT
  Age: 25 Year
  Sex: Female

DRUGS (1)
  1. ZYPADHERA [Suspect]
     Dosage: UNK, UNKNOWN

REACTIONS (4)
  - Hypotonia [Recovered/Resolved]
  - Dissociative disorder [Recovered/Resolved]
  - Depressed level of consciousness [Recovered/Resolved]
  - Petit mal epilepsy [Recovered/Resolved]
